FAERS Safety Report 7277516-6 (Version None)
Quarter: 2011Q1

REPORT INFORMATION
  Report Type: 
  Country: None (occurrence: None)
  Receive Date: 20110202
  Receipt Date: 20110202
  Transmission Date: 20110831
  Serious: Yes (Other)
  Sender: FDA-Public Use
  Company Number: None

PATIENT
  Age: 43 Year
  Weight: 63 kg

DRUGS (1)
  1. DOXEPIN HCL [Suspect]
     Indication: SLEEP DISORDER
     Dosage: 50MG HS PRN PO
     Route: 048
     Dates: start: 20110105, end: 20110113

REACTIONS (3)
  - DRY MOUTH [None]
  - CONSTIPATION [None]
  - DRY EYE [None]
